FAERS Safety Report 10499000 (Version 1)
Quarter: 2014Q4

REPORT INFORMATION
  Report Type: Spontaneous
  Country: US (occurrence: US)
  Receive Date: 20141006
  Receipt Date: 20141006
  Transmission Date: 20150528
  Serious: No
  Sender: FDA-Public Use
  Company Number: US-GILEAD-2014-0117035

PATIENT
  Age: 59 Year
  Sex: Female

DRUGS (10)
  1. SIMEPREVIR [Concomitant]
     Active Substance: SIMEPREVIR
  2. LORAZEPAM. [Concomitant]
     Active Substance: LORAZEPAM
     Indication: ANXIETY
  3. CAPSAICIN. [Concomitant]
     Active Substance: CAPSAICIN
     Indication: PAIN
  4. BACLOFEN. [Concomitant]
     Active Substance: BACLOFEN
     Indication: MUSCLE RIGIDITY
  5. SERTRALINE [Concomitant]
     Active Substance: SERTRALINE HYDROCHLORIDE
     Indication: DEPRESSION
  6. DICLOFENAC NA [Concomitant]
     Indication: PAIN
  7. DICLOFENAC NA [Concomitant]
     Indication: INFLAMMATION
  8. LIDOCAINE. [Concomitant]
     Active Substance: LIDOCAINE
     Indication: PAIN
  9. SOVALDI [Suspect]
     Active Substance: SOFOSBUVIR
     Indication: PRODUCT USED FOR UNKNOWN INDICATION
     Route: 065
  10. PRAZOSIN [Concomitant]
     Active Substance: PRAZOSIN
     Indication: POST-TRAUMATIC STRESS DISORDER

REACTIONS (1)
  - Blood pressure increased [Unknown]
